FAERS Safety Report 5978266-6 (Version None)
Quarter: 2008Q4

REPORT INFORMATION
  Report Type: 
  Country: None (occurrence: None)
  Receive Date: 20081204
  Receipt Date: 20081124
  Transmission Date: 20090506
  Serious: Yes (Hospitalization)
  Sender: FDA-Public Use
  Company Number: US-CELGENEUS-163-21880-08101683

PATIENT
  Sex: Male

DRUGS (1)
  1. REVLIMID [Suspect]
     Indication: MYELODYSPLASTIC SYNDROME
     Route: 048
     Dates: start: 20080819, end: 20080101

REACTIONS (3)
  - PERICARDITIS [None]
  - PNEUMONIA [None]
  - SINUSITIS [None]
